FAERS Safety Report 8736505 (Version 2)
Quarter: 2012Q4

REPORT INFORMATION
  Report Type: 
  Country: FR (occurrence: FR)
  Receive Date: 20120822
  Receipt Date: 20121003
  Transmission Date: 20130627
  Serious: Yes (Death, Hospitalization)
  Sender: FDA-Public Use
  Company Number: FR-ROCHE-1104732

PATIENT
  Age: 34 Year
  Sex: Male

DRUGS (6)
  1. VALIUM [Suspect]
     Indication: PRODUCT USED FOR UNKNOWN INDICATION
     Route: 048
     Dates: start: 201206, end: 20120625
  2. QUETIAPINE FUMARATE [Suspect]
     Indication: PSYCHOTIC DISORDER
     Dosage: Drug reported as Xeroquel
     Route: 048
     Dates: start: 20120605, end: 20120625
  3. LOXAPAC [Suspect]
     Indication: AGGRESSION
     Dosage: plus 100 drops when needed
     Route: 048
     Dates: start: 20120614, end: 20120625
  4. LEPTICUR [Suspect]
     Indication: PRODUCT USED FOR UNKNOWN INDICATION
     Route: 048
     Dates: start: 20120605, end: 20120625
  5. DEPAKINE [Suspect]
     Indication: PRODUCT USED FOR UNKNOWN INDICATION
     Route: 048
     Dates: start: 201206, end: 20120625
  6. RISPERDAL [Concomitant]

REACTIONS (3)
  - Intestinal obstruction [Fatal]
  - Intestinal ischaemia [Fatal]
  - Gastrointestinal necrosis [Fatal]
